FAERS Safety Report 4363927-5 (Version None)
Quarter: 2004Q2

REPORT INFORMATION
  Report Type: 
  Country: None (occurrence: None)
  Receive Date: 20040524
  Receipt Date: 20040524
  Transmission Date: 20050107
  Serious: Yes (Other)
  Sender: FDA-Public Use
  Company Number: None

PATIENT
  Age: 19 Year
  Sex: Female

DRUGS (1)
  1. APLISOL 5TU PARKEDALE [Suspect]
     Indication: TUBERCULIN TEST
     Dosage: 5TU 0.1 ML INTRADERMAL
     Route: 023
     Dates: start: 20040414, end: 20040514

REACTIONS (2)
  - PHARMACEUTICAL PRODUCT COMPLAINT [None]
  - TUBERCULIN TEST POSITIVE [None]
